FAERS Safety Report 7869942-9 (Version None)
Quarter: 2011Q4

REPORT INFORMATION
  Report Type: 
  Country: None (occurrence: None)
  Receive Date: 20111027
  Receipt Date: 20111013
  Transmission Date: 20120403
  Serious: Yes (Other)
  Sender: FDA-Public Use
  Company Number: US-2011-10338

PATIENT
  Age: 62 Year
  Sex: Male

DRUGS (8)
  1. ETOPOSIDE [Concomitant]
  2. ROXICODONE [Concomitant]
  3. CYCLOPHOSPHAMIDE [Concomitant]
  4. TAMSULOSIN HCL [Concomitant]
  5. ACYCLOVIR [Concomitant]
  6. BUSULFAN [Suspect]
     Indication: LYMPHOMA
     Dosage: 50 MG MILLIGRAM(S), INTRAVENOUS 249 MG MILLIGRAM(S), DAILY DOSE, INTRAVENOUS
     Route: 042
     Dates: start: 20110321, end: 20110321
  7. BUSULFAN [Suspect]
     Indication: LYMPHOMA
     Dosage: 50 MG MILLIGRAM(S), INTRAVENOUS 249 MG MILLIGRAM(S), DAILY DOSE, INTRAVENOUS
     Route: 042
     Dates: start: 20110324, end: 20110327
  8. OXYCONTIN [Concomitant]

REACTIONS (5)
  - PLATELET COUNT DECREASED [None]
  - HAEMATOCRIT DECREASED [None]
  - WHITE BLOOD CELL COUNT DECREASED [None]
  - DELAYED ENGRAFTMENT [None]
  - HAEMOGLOBIN DECREASED [None]
